FAERS Safety Report 23998866 (Version 2)
Quarter: 2024Q3

REPORT INFORMATION
  Report Type: Spontaneous
  Country: ES (occurrence: ES)
  Receive Date: 20240621
  Receipt Date: 20240717
  Transmission Date: 20241016
  Serious: Yes (Death, Hospitalization, Other)
  Sender: ACCORD
  Company Number: None

PATIENT
  Age: 44 Year
  Sex: Male
  Weight: 74 kg

DRUGS (4)
  1. LACOSAMIDE [Suspect]
     Active Substance: LACOSAMIDE
     Indication: Product used for unknown indication
     Dosage: UNK
  2. KEPPRA [Suspect]
     Active Substance: LEVETIRACETAM
     Indication: Product used for unknown indication
     Dosage: UNK
  3. DEXAMETHASONE [Suspect]
     Active Substance: DEXAMETHASONE
     Indication: Product used for unknown indication
     Dosage: UNK
  4. PEMIGATINIB [Suspect]
     Active Substance: PEMIGATINIB
     Indication: Glioblastoma
     Dosage: 13.5 MILLIGRAM, ONCE DAILY (QD)
     Dates: start: 20230928, end: 20231103

REACTIONS (4)
  - Seizure [Fatal]
  - Drug withdrawal convulsions [Not Recovered/Not Resolved]
  - Glioblastoma [Fatal]
  - Disease progression [Fatal]

NARRATIVE: CASE EVENT DATE: 20231029
